FAERS Safety Report 6327632-8 (Version None)
Quarter: 2009Q3

REPORT INFORMATION
  Report Type: 
  Country: None (occurrence: None)
  Receive Date: 20090821
  Receipt Date: 20090810
  Transmission Date: 20100115
  Serious: Yes (Death, Hospitalization)
  Sender: FDA-Public Use
  Company Number: ADR12472009

PATIENT
  Age: 65 Year
  Sex: Male

DRUGS (8)
  1. PRAVASTATIN [Suspect]
     Indication: HYPERCHOLESTEROLAEMIA
     Dosage: ORAL
     Route: 048
  2. ZOCOR [Concomitant]
  3. ASPIRIN [Concomitant]
  4. ATENOLOL [Concomitant]
  5. CIMETIDINE [Concomitant]
  6. CIPROFLAXACIN [Concomitant]
  7. ENALAPRIL MALEATE [Concomitant]
  8. RAMIPRIL [Concomitant]

REACTIONS (7)
  - COLITIS ULCERATIVE [None]
  - GASTROINTESTINAL NECROSIS [None]
  - HYPOTENSION [None]
  - MEGACOLON [None]
  - MULTI-ORGAN FAILURE [None]
  - PERITONEAL ABSCESS [None]
  - PERITONITIS [None]
